FAERS Safety Report 8602723 (Version 2)
Quarter: 2012Q4

REPORT INFORMATION
  Report Type: 
  Country: US (occurrence: US)
  Receive Date: 20120607
  Receipt Date: 20121017
  Transmission Date: 20130627
  Serious: Yes (Hospitalization)
  Sender: FDA-Public Use
  Company Number: US-BAYER-2012-056104

PATIENT
  Age: 29 Year
  Sex: Female
  Weight: 79.37 kg

DRUGS (8)
  1. YAZ [Suspect]
     Indication: CONTRACEPTION
     Dosage: UNK
     Dates: start: 200802, end: 200908
  2. MOTRIN [Concomitant]
     Dosage: UNK UNK, PRN
  3. AZITHROMYCIN [Concomitant]
     Dosage: 250 mg, UNK
  4. METRONIDAZOLE [Concomitant]
     Dosage: 500 mg, UNK
  5. LEVAQUIN [Concomitant]
     Route: 042
  6. MORPHINE [Concomitant]
  7. ZOFRAN [Concomitant]
  8. PROTONIX [Concomitant]

REACTIONS (7)
  - Cholelithiasis [None]
  - Cholecystitis chronic [None]
  - Injury [None]
  - Pain [None]
  - Abdominal pain [None]
  - Nausea [None]
  - Vomiting [None]
